APPROVED DRUG PRODUCT: DESLORATADINE
Active Ingredient: DESLORATADINE
Strength: 5MG
Dosage Form/Route: TABLET;ORAL
Application: A078351 | Product #001
Applicant: DASH PHARMACEUTICALS LLC
Approved: Feb 10, 2012 | RLD: No | RS: No | Type: DISCN